FAERS Safety Report 7550220-2 (Version None)
Quarter: 2011Q2

REPORT INFORMATION
  Report Type: 
  Country: None (occurrence: None)
  Receive Date: 20110615
  Receipt Date: 20110602
  Transmission Date: 20111010
  Serious: Yes (Other)
  Sender: FDA-Public Use
  Company Number: DE-UCBSA-034510

PATIENT
  Age: 33 Year
  Sex: Female

DRUGS (2)
  1. VIMPAT [Suspect]
  2. LEVETIRACETAM [Suspect]

REACTIONS (1)
  - CONVULSION [None]
